FAERS Safety Report 21214860 (Version 1)
Quarter: 2022Q3

REPORT INFORMATION
  Report Type: Spontaneous
  Country: KR (occurrence: KR)
  Receive Date: 20220816
  Receipt Date: 20220816
  Transmission Date: 20221027
  Serious: Yes (Other)
  Sender: FDA-Public Use
  Company Number: KR-SA-SAC20220811001510

PATIENT
  Sex: Female

DRUGS (1)
  1. DUPILUMAB [Suspect]
     Active Substance: DUPILUMAB
     Indication: Dermatitis atopic
     Dosage: UNK
     Route: 058
     Dates: start: 2021, end: 2022

REACTIONS (3)
  - Tuberculosis [Unknown]
  - Lymphadenopathy [Recovering/Resolving]
  - Granuloma [Unknown]

NARRATIVE: CASE EVENT DATE: 20210101
